FAERS Safety Report 7691890-8 (Version None)
Quarter: 2011Q3

REPORT INFORMATION
  Report Type: 
  Country: None (occurrence: None)
  Receive Date: 20110818
  Receipt Date: 20110816
  Transmission Date: 20111222
  Serious: No
  Sender: FDA-Public Use
  Company Number: US-PFIZER INC-2009262757

PATIENT
  Sex: Female

DRUGS (5)
  1. ACETYLSALICYLIC ACID [Concomitant]
     Dosage: UNK
  2. CHANTIX [Suspect]
     Dosage: UNK
  3. LIPITOR [Concomitant]
     Dosage: UNK
  4. SPIRIVA [Concomitant]
     Dosage: UNK
  5. PLAVIX [Concomitant]
     Dosage: UNK

REACTIONS (2)
  - NAUSEA [None]
  - ABNORMAL DREAMS [None]
